FAERS Safety Report 6493114-6 (Version None)
Quarter: 2009Q4

REPORT INFORMATION
  Report Type: 
  Country: None (occurrence: None)
  Receive Date: 20091211
  Receipt Date: 20091211
  Transmission Date: 20100525
  Serious: Yes (Hospitalization)
  Sender: FDA-Public Use
  Company Number: None

PATIENT
  Age: 47 Year
  Sex: Female
  Weight: 60 kg

DRUGS (2)
  1. FLUOROURACIL [Suspect]
     Indication: COLON CANCER
     Dosage: 4010 MG ONE TIME IV
     Route: 042
     Dates: start: 20091020, end: 20091020
  2. FLUOROURACIL [Suspect]
     Indication: COLON CANCER
     Dosage: 670 MG ONE TIME IV BOLUS
     Route: 040
     Dates: start: 20091020, end: 20091020

REACTIONS (3)
  - DYSPNOEA [None]
  - HYPERHIDROSIS [None]
  - PALPITATIONS [None]
